FAERS Safety Report 16887064 (Version 3)
Quarter: 2020Q1

REPORT INFORMATION
  Report Type: Spontaneous
  Country: CA (occurrence: CA)
  Receive Date: 20191004
  Receipt Date: 20200117
  Transmission Date: 20200409
  Serious: Yes (Hospitalization, Other)
  Sender: FDA-Public Use
  Company Number: CA-PFIZER INC-2019423742

PATIENT
  Age: 77 Year
  Sex: Male
  Weight: 92.97 kg

DRUGS (6)
  1. LYRICA [Suspect]
     Active Substance: PREGABALIN
     Indication: INFLAMMATION
  2. LYRICA [Suspect]
     Active Substance: PREGABALIN
     Indication: PAIN
     Dosage: 25 MG, 3X/DAY
     Dates: start: 201807, end: 201808
  3. DILAUDID [Concomitant]
     Active Substance: HYDROMORPHONE HYDROCHLORIDE
     Dosage: UNK
     Dates: start: 201807, end: 201808
  4. TRAMADOL + PARACETAMOL TEVA [Concomitant]
     Active Substance: ACETAMINOPHEN\TRAMADOL HYDROCHLORIDE
     Dosage: UNK
     Dates: start: 201807, end: 201808
  5. LYRICA [Suspect]
     Active Substance: PREGABALIN
     Indication: KNEE OPERATION
  6. MELOXICAM TEVA [Concomitant]
     Dosage: UNK
     Dates: start: 201807, end: 201808

REACTIONS (2)
  - Atrioventricular block [Not Recovered/Not Resolved]
  - Parkinson^s disease [Not Recovered/Not Resolved]

NARRATIVE: CASE EVENT DATE: 20180815
